FAERS Safety Report 5477720-3 (Version None)
Quarter: 2007Q4

REPORT INFORMATION
  Report Type: 
  Country: None (occurrence: None)
  Receive Date: 20071003
  Receipt Date: 20071003
  Transmission Date: 20080405
  Serious: Yes (Death, Hospitalization)
  Sender: FDA-Public Use
  Company Number: None

PATIENT
  Age: 54 Year
  Sex: Male

DRUGS (2)
  1. ACETAMINOPHEN [Suspect]
     Indication: PAIN IN JAW
     Dosage: 650MG  QID  PO
     Route: 048
     Dates: start: 20070414, end: 20070910
  2. ACETAMINOPHEN [Suspect]
     Indication: PAIN IN JAW
     Dosage: 650MG  QID  PO
     Route: 048
     Dates: start: 20070901, end: 20070910

REACTIONS (9)
  - HEPATIC FAILURE [None]
  - HEPATITIS ALCOHOLIC [None]
  - HEPATOCELLULAR DAMAGE [None]
  - INTESTINAL PERFORATION [None]
  - METABOLIC ACIDOSIS [None]
  - MULTI-ORGAN FAILURE [None]
  - RENAL FAILURE [None]
  - RESPIRATORY FAILURE [None]
  - SEPTIC SHOCK [None]
